FAERS Safety Report 10098618 (Version 1)
Quarter: 2014Q2

REPORT INFORMATION
  Report Type: Spontaneous
  Country: JP (occurrence: None)
  Receive Date: 20140421
  Receipt Date: 20140421
  Transmission Date: 20141212
  Serious: Yes (Death)
  Sender: FDA-Public Use
  Company Number: B140414010

PATIENT
  Age: 29 Year
  Sex: Female

DRUGS (1)
  1. BUPHEYL [Suspect]
     Indication: AMINO ACID METABOLISM DISORDER
     Route: 048
     Dates: start: 20140407, end: 20140411

REACTIONS (2)
  - Brain oedema [None]
  - Hyperammonaemia [None]
